FAERS Safety Report 16213288 (Version 1)
Quarter: 2019Q2

REPORT INFORMATION
  Report Type: Spontaneous
  Country: NL (occurrence: NL)
  Receive Date: 20190418
  Receipt Date: 20190418
  Transmission Date: 20190711
  Serious: Yes (Hospitalization)
  Sender: FDA-Public Use
  Company Number: NL-TEVA-2019-NL-1038142

PATIENT
  Age: 79 Year
  Sex: Male

DRUGS (1)
  1. ALFUZOSINE HYDROCHLORIDE RETARD 10MG PCH [Suspect]
     Active Substance: ALFUZOSIN HYDROCHLORIDE

REACTIONS (1)
  - Asthenia [Unknown]
